FAERS Safety Report 5939791-7 (Version None)
Quarter: 2008Q4

REPORT INFORMATION
  Report Type: 
  Country: None (occurrence: None)
  Receive Date: 20081030
  Receipt Date: 20081030
  Transmission Date: 20090506
  Serious: Yes (Life-Threatening, Hospitalization, Other)
  Sender: FDA-Public Use
  Company Number: None

PATIENT
  Age: 47 Year
  Sex: Female
  Weight: 54.4316 kg

DRUGS (4)
  1. DICLOFENAC SODIUM [Suspect]
     Indication: ARTHRALGIA
     Dosage: 2 X DAY PO
     Route: 048
     Dates: start: 20041121, end: 20041121
  2. DICLOFENAC SODIUM [Suspect]
     Indication: JOINT INJURY
     Dosage: 2 X DAY PO
     Route: 048
     Dates: start: 20041121, end: 20041121
  3. DICLOFENAC SODIUM [Suspect]
     Indication: ARTHRALGIA
     Dosage: 2 X DAY PO
     Route: 048
     Dates: start: 20041123, end: 20041123
  4. DICLOFENAC SODIUM [Suspect]
     Indication: JOINT INJURY
     Dosage: 2 X DAY PO
     Route: 048
     Dates: start: 20041123, end: 20041123

REACTIONS (12)
  - ALOPECIA [None]
  - ASTHENIA [None]
  - BLINDNESS [None]
  - DEAFNESS [None]
  - FATIGUE [None]
  - ILL-DEFINED DISORDER [None]
  - PANIC ATTACK [None]
  - SECRETION DISCHARGE [None]
  - SKIN LESION [None]
  - SKIN ULCER [None]
  - SOMNOLENCE [None]
  - TOOTH FRACTURE [None]
